FAERS Safety Report 18366746 (Version 2)
Quarter: 2020Q4

REPORT INFORMATION
  Report Type: Spontaneous
  Country: US (occurrence: US)
  Receive Date: 20201009
  Receipt Date: 20201208
  Transmission Date: 20210114
  Serious: Yes (Hospitalization)
  Sender: FDA-Public Use
  Company Number: US-GILEAD-2020-0497945

PATIENT
  Age: 63 Year
  Sex: Female
  Weight: 75.37 kg

DRUGS (16)
  1. HARVONI [Suspect]
     Active Substance: LEDIPASVIR\SOFOSBUVIR
     Indication: HEPATITIS C
     Dosage: 1 DOSAGE FORM
     Route: 048
     Dates: start: 20200729, end: 20200928
  2. MYRBETRIQ [Concomitant]
     Active Substance: MIRABEGRON
  3. ALBUTEROL SULFATE. [Concomitant]
     Active Substance: ALBUTEROL SULFATE
  4. COMBIVENT RESPIMAT [Concomitant]
     Active Substance: ALBUTEROL SULFATE\IPRATROPIUM BROMIDE
  5. PANTOPRAZOLE [Concomitant]
     Active Substance: PANTOPRAZOLE
  6. PROMETHAZINE [Concomitant]
     Active Substance: PROMETHAZINE HYDROCHLORIDE
  7. ONDANSETRON [Concomitant]
     Active Substance: ONDANSETRON
  8. FLUCONAZOL [Concomitant]
     Active Substance: FLUCONAZOLE
  9. GABAPENTIN. [Concomitant]
     Active Substance: GABAPENTIN
  10. FORTEO [Concomitant]
     Active Substance: TERIPARATIDE
  11. HYDROXYCHLOROQUINE [Concomitant]
     Active Substance: HYDROXYCHLOROQUINE
  12. VALACYCLOVIR [Concomitant]
     Active Substance: VALACYCLOVIR HYDROCHLORIDE
  13. OXYCODONE [Concomitant]
     Active Substance: OXYCODONE
  14. DIAZEPAM. [Concomitant]
     Active Substance: DIAZEPAM
  15. HYDROXYZINE [Concomitant]
     Active Substance: HYDROXYZINE HYDROCHLORIDE
  16. DULOXETINE. [Concomitant]
     Active Substance: DULOXETINE

REACTIONS (3)
  - Vomiting [Recovered/Resolved]
  - Hypertension [Recovered/Resolved]
  - Abdominal pain [Recovered/Resolved]
